FAERS Safety Report 8599851-1 (Version None)
Quarter: 2012Q3

REPORT INFORMATION
  Report Type: 
  Country: None (occurrence: None)
  Receive Date: 20120816
  Receipt Date: 20120813
  Transmission Date: 20120928
  Serious: Yes (Other)
  Sender: FDA-Public Use
  Company Number: US-PFIZER INC-2012197609

PATIENT
  Age: 45 Year
  Sex: Female
  Weight: 70.295 kg

DRUGS (4)
  1. LYRICA [Suspect]
     Indication: FIBROMYALGIA
     Dosage: 75 MG, 3X/DAY
  2. ESTRADIOL [Concomitant]
     Indication: HYSTERECTOMY
     Dosage: 1 MG, DAILY
  3. LYRICA [Suspect]
     Dosage: 75 MG, 2X/DAY
  4. TOPROL-XL [Concomitant]
     Indication: SUPRAVENTRICULAR TACHYCARDIA
     Dosage: 100 MG, DAILY

REACTIONS (4)
  - HYPERPHAGIA [None]
  - WEIGHT INCREASED [None]
  - FATIGUE [None]
  - SOMNOLENCE [None]
